FAERS Safety Report 4412982-2 (Version None)
Quarter: 2004Q3

REPORT INFORMATION
  Report Type: 
  Country: None (occurrence: None)
  Receive Date: 20040730
  Receipt Date: 20040730
  Transmission Date: 20050211
  Serious: Yes (Hospitalization)
  Sender: FDA-Public Use
  Company Number: None

PATIENT
  Age: 83 Year
  Sex: Male
  Weight: 63.5036 kg

DRUGS (12)
  1. FUROSEMIDE [Suspect]
     Indication: CARDIAC FAILURE CONGESTIVE
     Dosage: 20 MG DAILY PTA ?
  2. PROPOXYPHENE N 100/ APAP [Concomitant]
  3. LORAZEPAM [Concomitant]
  4. FOSINOPRIL NA [Concomitant]
  5. SIMETHICONE [Concomitant]
  6. TIMOLOL MALEATE [Concomitant]
  7. BRIMONIDINE TARTRATE [Concomitant]
  8. LASIX [Concomitant]
  9. ALDACTONE [Concomitant]
  10. TYRCOL [Concomitant]
  11. ATIVAN [Concomitant]
  12. ASPIRIN [Concomitant]

REACTIONS (1)
  - HYPONATRAEMIA [None]
